FAERS Safety Report 16936671 (Version 1)
Quarter: 2019Q4

REPORT INFORMATION
  Report Type: Report from Study
  Country: ES (occurrence: ES)
  Receive Date: 20191018
  Receipt Date: 20191018
  Transmission Date: 20200122
  Serious: Yes (Other)
  Sender: FDA-Public Use
  Company Number: ES-PFIZER INC-2018054291

PATIENT
  Age: 59 Year
  Sex: Female

DRUGS (4)
  1. PEGYLATED LIPOSOMAL DOXORUBICIN [Suspect]
     Active Substance: DOXORUBICIN
     Indication: OVARIAN CANCER
     Dosage: UNK
     Route: 042
     Dates: start: 20170428, end: 20171115
  2. DOXORUBICIN HCL [Suspect]
     Active Substance: DOXORUBICIN HYDROCHLORIDE
     Dosage: 54 MG, CYCLIC (CYCLE 1-9)
     Route: 042
     Dates: start: 20170428, end: 20171207
  3. TRABECTEDIN [Suspect]
     Active Substance: TRABECTEDIN
     Indication: OVARIAN CANCER
     Dosage: 2 MG, CYCLIC (CYCLE 1-10)
     Route: 042
     Dates: start: 20170428, end: 20180110
  4. DOXORUBICIN HCL [Suspect]
     Active Substance: DOXORUBICIN HYDROCHLORIDE
     Indication: OVARIAN CANCER
     Dosage: 54.6 MG, CYCLIC (CYCLE 10)
     Route: 042
     Dates: start: 20180110, end: 20180110

REACTIONS (32)
  - Leukopenia [Recovered/Resolved with Sequelae]
  - Oedema [Recovered/Resolved]
  - Nausea [Recovered/Resolved]
  - Decreased appetite [Recovered/Resolved]
  - Nausea [Recovered/Resolved]
  - Asthenia [Recovered/Resolved]
  - Neutrophil count decreased [Recovered/Resolved]
  - Decreased appetite [Recovered/Resolved]
  - Neutrophil count decreased [Recovered/Resolved with Sequelae]
  - Gamma-glutamyltransferase increased [Recovered/Resolved]
  - Pain [Recovered/Resolved]
  - Constipation [Recovered/Resolved]
  - Anaemia [Recovered/Resolved with Sequelae]
  - Decreased appetite [Recovered/Resolved]
  - Neurotoxicity [Recovered/Resolved]
  - Anaemia [Not Recovered/Not Resolved]
  - Depression [Recovered/Resolved]
  - Onycholysis [Recovered/Resolved]
  - Mucosal inflammation [Recovered/Resolved]
  - Thrombophlebitis [Recovered/Resolved]
  - Decreased appetite [Recovered/Resolved]
  - Blood cholesterol abnormal [Not Recovered/Not Resolved]
  - Leukopenia [Not Recovered/Not Resolved]
  - Dysgeusia [Recovered/Resolved]
  - Gamma-glutamyltransferase increased [Recovered/Resolved]
  - Asthenia [Recovered/Resolved]
  - Deep vein thrombosis [Recovered/Resolved]
  - Neurotoxicity [Not Recovered/Not Resolved]
  - Neutrophil count decreased [Recovered/Resolved]
  - Nausea [Recovered/Resolved]
  - Vomiting [Recovered/Resolved]
  - Asthenia [Recovered/Resolved]

NARRATIVE: CASE EVENT DATE: 20170428
